FAERS Safety Report 4855087-9 (Version None)
Quarter: 2005Q4

REPORT INFORMATION
  Report Type: 
  Country: None (occurrence: None)
  Receive Date: 20051215
  Receipt Date: 20051205
  Transmission Date: 20060501
  Serious: Yes (Hospitalization)
  Sender: FDA-Public Use
  Company Number: US-ABBOTT-05P-163-0319402-00

PATIENT
  Age: 22 Month

DRUGS (1)
  1. FERROUS SULFATE TAB [Suspect]
     Indication: DRUG USE FOR UNKNOWN INDICATION
     Dosage: 4 TABLETS

REACTIONS (5)
  - DIARRHOEA [None]
  - NAUSEA [None]
  - OVERDOSE [None]
  - STUPOR [None]
  - VOMITING [None]
